FAERS Safety Report 4582410-5 (Version None)
Quarter: 2005Q1

REPORT INFORMATION
  Report Type: 
  Country: None (occurrence: None)
  Receive Date: 20050119
  Receipt Date: 20040629
  Transmission Date: 20050727
  Serious: Yes (Death)
  Sender: FDA-Public Use
  Company Number: US-JNJFOC-20040700985

PATIENT
  Age: 66 Year
  Sex: Female

DRUGS (1)
  1. DOXIL [Suspect]
     Indication: GENITAL NEOPLASM MALIGNANT FEMALE
     Dosage: 80 MG X 6 CYCLES
     Dates: start: 20030101, end: 20040101

REACTIONS (1)
  - MALIGNANT NEOPLASM PROGRESSION [None]
